FAERS Safety Report 6683928-1 (Version None)
Quarter: 2010Q2

REPORT INFORMATION
  Report Type: 
  Country: None (occurrence: None)
  Receive Date: 20100416
  Receipt Date: 20100406
  Transmission Date: 20101027
  Serious: Yes (Other)
  Sender: FDA-Public Use
  Company Number: US-PFIZER INC-2010044146

PATIENT
  Sex: Female
  Weight: 75 kg

DRUGS (16)
  1. LIPITOR [Suspect]
     Indication: BLOOD TRIGLYCERIDES INCREASED
     Route: 048
  2. GEMFIBROZIL [Suspect]
     Indication: BLOOD TRIGLYCERIDES INCREASED
     Dosage: UNK
  3. TRICOR [Suspect]
     Dosage: UNK
  4. LEVOTHYROXINE [Concomitant]
     Indication: HYPOTHYROIDISM
     Dosage: 75 UG, UNK
  5. NIACIN [Concomitant]
     Dosage: 1000 MG, UNK
  6. AMITRIPTYLINE [Concomitant]
     Dosage: 25 MG, UNK
  7. COZAAR [Concomitant]
     Dosage: 50 MG, UNK
  8. LYRICA [Concomitant]
     Dosage: 100 MG, UNK
  9. RANITIDINE [Concomitant]
     Dosage: 300 MG, UNK
  10. AMLODIPINE [Concomitant]
     Dosage: UNK
  11. VICODIN [Concomitant]
     Dosage: 500 MG, UNK
  12. ELAVIL [Concomitant]
     Dosage: 25 MG, UNK
  13. CYMBALTA [Concomitant]
     Dosage: UNK
  14. NALBUPHINE [Concomitant]
     Dosage: UNK
  15. PROMETHAZINE [Concomitant]
     Dosage: UNK
  16. BENADRYL [Concomitant]
     Dosage: 25 MG, UNK

REACTIONS (1)
  - MUSCLE SPASMS [None]
